FAERS Safety Report 9649575 (Version 1)
Quarter: 2013Q4

REPORT INFORMATION
  Report Type: Spontaneous
  Country: GB (occurrence: None)
  Receive Date: 20131025
  Receipt Date: 20131025
  Transmission Date: 20140711
  Serious: Yes (Life-Threatening, Hospitalization)
  Sender: FDA-Public Use
  Company Number: AUR-APL-2013-08763

PATIENT
  Age: 51 Year
  Sex: Female

DRUGS (7)
  1. AMOXICILLIN+CLAVULANIC ACID [Suspect]
     Indication: PLEURITIC PAIN
     Route: 048
     Dates: start: 201307
  2. FERROUS SULPHATE (FERROUS SULFATE) [Concomitant]
  3. LANTUS (INSULIN GLARGINE) [Concomitant]
  4. NASONEX (MOMETASONE FUROATE) [Concomitant]
  5. NOVORAPID (INSULIN ASPART) [Concomitant]
  6. OMEPRAZOLE (OMEPRAZOLE) [Concomitant]
  7. URSODEOXYCHOLIC ACID (URSODEOXYCHOLIC ACID) [Concomitant]

REACTIONS (6)
  - Jaundice cholestatic [None]
  - Ascites [None]
  - Condition aggravated [None]
  - Oedema [None]
  - Liver injury [None]
  - Liver transplant [None]
